FAERS Safety Report 24985779 (Version 2)
Quarter: 2025Q2

REPORT INFORMATION
  Report Type: Spontaneous
  Country: US (occurrence: US)
  Receive Date: 20250219
  Receipt Date: 20250611
  Transmission Date: 20250717
  Serious: No
  Sender: BLUEPRINT MEDICINES
  Company Number: US-Blueprint Medicines Corporation-2025-AER-00317

PATIENT
  Age: 26 Year
  Sex: Female

DRUGS (1)
  1. AYVAKIT [Suspect]
     Active Substance: AVAPRITINIB
     Indication: Brain neoplasm malignant
     Route: 048
     Dates: start: 20240129

REACTIONS (7)
  - Abdominal pain upper [Unknown]
  - Flatulence [Unknown]
  - Pain [Unknown]
  - Blood test abnormal [Unknown]
  - Migraine [Unknown]
  - Aphasia [Unknown]
  - Off label use [Unknown]
